FAERS Safety Report 9402293 (Version 1)
Quarter: 2013Q3

REPORT INFORMATION
  Report Type: Report from Study
  Country: CA (occurrence: CA)
  Receive Date: 20130716
  Receipt Date: 20130716
  Transmission Date: 20140515
  Serious: Yes (Other)
  Sender: FDA-Public Use
  Company Number: CA-JNJFOC-20130706756

PATIENT
  Age: 45 Year
  Sex: Female
  Weight: 73.6 kg

DRUGS (5)
  1. REMICADE [Suspect]
     Indication: CROHN^S DISEASE
     Route: 042
  2. AZATHIOPRINE [Concomitant]
     Route: 065
  3. LOMOTIL [Concomitant]
     Route: 065
  4. IRON INFUSION [Concomitant]
     Route: 065
  5. CODEINE [Concomitant]
     Route: 065

REACTIONS (1)
  - Biopsy kidney [Unknown]
